FAERS Safety Report 14615952 (Version 2)
Quarter: 2018Q1

REPORT INFORMATION
  Report Type: Report from Study
  Country: MX (occurrence: MX)
  Receive Date: 20180309
  Receipt Date: 20180326
  Transmission Date: 20180509
  Serious: Yes (Other)
  Sender: FDA-Public Use
  Company Number: MX-ORION CORPORATION ORION PHARMA-ENTC2017-0102

PATIENT
  Sex: Female
  Weight: 76 kg

DRUGS (6)
  1. LOSARTAN. [Concomitant]
     Active Substance: LOSARTAN
     Route: 065
  2. STALEVO [Suspect]
     Active Substance: CARBIDOPA\ENTACAPONE\LEVODOPA
     Indication: PARKINSON^S DISEASE
     Dosage: STRENGTH: 100/25/200 MG
     Route: 065
  3. STALEVO [Suspect]
     Active Substance: CARBIDOPA\ENTACAPONE\LEVODOPA
     Dosage: STRENGTH: 100/25/200 MG
     Route: 048
  4. OMEPRAZOLE. [Concomitant]
     Active Substance: OMEPRAZOLE
     Route: 065
  5. AZILECT [Concomitant]
     Active Substance: RASAGILINE MESYLATE
     Route: 065
  6. ASILAC [Concomitant]
     Route: 065

REACTIONS (16)
  - Hypoacusis [Not Recovered/Not Resolved]
  - Dizziness [Unknown]
  - Diarrhoea [Unknown]
  - Drug dose omission [Unknown]
  - Drug ineffective [Unknown]
  - Constipation [Not Recovered/Not Resolved]
  - Pyrexia [Recovered/Resolved]
  - Fatigue [Unknown]
  - Tremor [Unknown]
  - Feeling abnormal [Unknown]
  - Tongue movement disturbance [Not Recovered/Not Resolved]
  - Speech disorder [Not Recovered/Not Resolved]
  - Hypertension [Recovering/Resolving]
  - Influenza [Recovered/Resolved]
  - Vomiting [Unknown]
  - Decreased appetite [Unknown]
